FAERS Safety Report 4717278-7 (Version None)
Quarter: 2005Q3

REPORT INFORMATION
  Report Type: 
  Country: None (occurrence: None)
  Receive Date: 20050715
  Receipt Date: 20050707
  Transmission Date: 20060218
  Serious: Yes (Hospitalization, Disabling)
  Sender: FDA-Public Use
  Company Number: SU-2005-003748

PATIENT
  Sex: Male

DRUGS (1)
  1. BENICAR [Suspect]
     Indication: HYPERTENSION
     Dosage: 40 MG QD PO
     Route: 048
     Dates: start: 20041001, end: 20041101

REACTIONS (2)
  - CEREBROVASCULAR ACCIDENT [None]
  - CONTRAINDICATION TO MEDICAL TREATMENT [None]
